FAERS Safety Report 23867182 (Version 8)
Quarter: 2024Q4

REPORT INFORMATION
  Report Type: Spontaneous
  Country: US (occurrence: US)
  Receive Date: 20240517
  Receipt Date: 20241003
  Transmission Date: 20250115
  Serious: No
  Sender: PFIZER
  Company Number: US-PFIZER INC-202400107164

PATIENT
  Age: 13 Year
  Sex: Male
  Weight: 67.3 kg

DRUGS (2)
  1. GENOTROPIN [Suspect]
     Active Substance: SOMATROPIN
     Indication: Growth hormone deficiency
     Dosage: 2.2 MG, DAILY
  2. GENOTROPIN [Suspect]
     Active Substance: SOMATROPIN
     Indication: Hypopituitarism
     Dosage: 2.4 MG, DAILY (NIGHTLY (AT BEDTIME)); 7 DAYS/WEEK
     Route: 058
     Dates: start: 20240708

REACTIONS (1)
  - Device mechanical issue [Unknown]
